FAERS Safety Report 6251999-2 (Version None)
Quarter: 2009Q2

REPORT INFORMATION
  Report Type: 
  Country: None (occurrence: None)
  Receive Date: 20090630
  Receipt Date: 20040127
  Transmission Date: 20091009
  Serious: Yes (Death, Hospitalization)
  Sender: FDA-Public Use
  Company Number: US-ROCHE-638356

PATIENT
  Sex: Male

DRUGS (9)
  1. ENFUVIRTIDE [Suspect]
     Route: 065
     Dates: start: 20040604, end: 20050606
  2. COMBIVIR [Concomitant]
     Dates: start: 19980813, end: 20040614
  3. FORTOVASE [Concomitant]
     Dates: start: 19980813, end: 20040614
  4. NORVIR [Concomitant]
     Dates: start: 20000709, end: 20040614
  5. EMTRIVA [Concomitant]
     Dosage: FREQUENCY REPORTED AS QD
     Dates: start: 20040604, end: 20040606
  6. SUSTIVA [Concomitant]
     Dosage: FREQUENCY REPORTED AS QD
     Dates: start: 20040604, end: 20050606
  7. VIREAD [Concomitant]
     Dosage: FREQUENCY REPORTED AS QD
     Dates: start: 20040604, end: 20050606
  8. DIFLUCAN [Concomitant]
     Dosage: FREQUENCY REPORTED AS QD
     Dates: start: 20040614, end: 20050606
  9. LEVAQUIN [Concomitant]
     Dosage: FREQUENCY REPORTED AS QD
     Dates: start: 20040614, end: 20040624

REACTIONS (11)
  - ACQUIRED IMMUNODEFICIENCY SYNDROME [None]
  - ANAEMIA [None]
  - CACHEXIA [None]
  - CANDIDIASIS [None]
  - DEHYDRATION [None]
  - GASTRITIS [None]
  - HIV WASTING SYNDROME [None]
  - IDIOPATHIC THROMBOCYTOPENIC PURPURA [None]
  - MALNUTRITION [None]
  - THROMBOCYTOPENIA [None]
  - URINARY TRACT INFECTION [None]
